FAERS Safety Report 6371530-0 (Version None)
Quarter: 2009Q3

REPORT INFORMATION
  Report Type: 
  Country: None (occurrence: None)
  Receive Date: 20090923
  Receipt Date: 20080115
  Transmission Date: 20100115
  Serious: No
  Sender: FDA-Public Use
  Company Number: US-ASTRAZENECA-2007UW19774

PATIENT
  Age: 15626 Day
  Sex: Male
  Weight: 86.2 kg

DRUGS (21)
  1. SEROQUEL [Suspect]
     Indication: BIPOLAR DISORDER
     Dosage: VARIED DOSES, INCLUDING BUT NOT LIMITED TO 600 MG
     Route: 048
     Dates: start: 20031001
  2. SEROQUEL [Suspect]
     Indication: SCHIZOPHRENIA
     Dosage: VARIED DOSES, INCLUDING BUT NOT LIMITED TO 600 MG
     Route: 048
     Dates: start: 20031001
  3. SEROQUEL [Suspect]
     Dosage: 25-200 MG
     Route: 048
     Dates: start: 20040619
  4. SEROQUEL [Suspect]
     Dosage: 25-200 MG
     Route: 048
     Dates: start: 20040619
  5. GEODON [Concomitant]
     Route: 065
  6. HALDOL (HALOPERDOL) [Concomitant]
     Route: 065
     Dates: start: 20010101
  7. SOLIAN (AMISULPRIDE) [Concomitant]
     Dosage: VARIOUS DOSES, 3MG PER DAY
     Route: 065
     Dates: start: 20030101
  8. ZYPREXA/SYMBYAX (OLANZAPINE) [Concomitant]
     Route: 065
     Dates: start: 20010101
  9. TRILEPTA [Concomitant]
     Route: 065
     Dates: start: 20050101
  10. LITHEMUM [Concomitant]
     Route: 065
     Dates: start: 20040101
  11. GLUCOPHAGE [Concomitant]
     Route: 065
  12. TRAZODONE HYDROCHLORIDE [Concomitant]
     Dosage: 30-50 MG
     Route: 065
  13. LORAZEPAM [Concomitant]
     Dosage: 1-2 MG
     Route: 065
  14. BENZTROPINE MESYLATE [Concomitant]
     Dosage: 1-2 MG
     Route: 065
  15. RISPERIDONE [Concomitant]
     Route: 065
  16. OXCARBAZEPINE [Concomitant]
     Route: 065
  17. ACETAMINOPHEN [Concomitant]
     Route: 065
  18. IBUPROFEN [Concomitant]
     Dosage: 400-600 MG
     Route: 065
  19. PRAVASTATIN SODIUM [Concomitant]
     Route: 065
  20. CELEBREX [Concomitant]
     Route: 065
  21. INSULIN [Concomitant]
     Route: 065

REACTIONS (8)
  - ARTHRALGIA [None]
  - DIABETES MELLITUS [None]
  - HALLUCINATION, AUDITORY [None]
  - OROPHARYNGEAL PAIN [None]
  - PAIN [None]
  - SINUSITIS [None]
  - SUNBURN [None]
  - WEIGHT INCREASED [None]
